FAERS Safety Report 15694785 (Version 2)
Quarter: 2018Q4

REPORT INFORMATION
  Report Type: Spontaneous
  Country: BR (occurrence: BR)
  Receive Date: 20181206
  Receipt Date: 20181226
  Transmission Date: 20190205
  Serious: Yes (Other)
  Sender: FDA-Public Use
  Company Number: BR-PFIZER INC-2018499124

PATIENT
  Sex: Female

DRUGS (2)
  1. FRONTAL XR [Suspect]
     Active Substance: ALPRAZOLAM
     Indication: ANXIETY
  2. FRONTAL XR [Suspect]
     Active Substance: ALPRAZOLAM
     Indication: DEPRESSIVE SYMPTOM
     Dosage: UNK

REACTIONS (5)
  - Drug dependence [Unknown]
  - Withdrawal syndrome [Unknown]
  - Agitation [Unknown]
  - Nervousness [Unknown]
  - Suicidal ideation [Unknown]
